FAERS Safety Report 26002723 (Version 2)
Quarter: 2025Q4

REPORT INFORMATION
  Report Type: Report from Study
  Country: TR (occurrence: TR)
  Receive Date: 20251106
  Receipt Date: 20251128
  Transmission Date: 20260119
  Serious: Yes (Death, Hospitalization, Other)
  Sender: ABBVIE
  Company Number: TR-ABBVIE-6528867

PATIENT
  Age: 72 Year
  Sex: Male
  Weight: 65 kg

DRUGS (3)
  1. CARBIDOPA\LEVODOPA [Suspect]
     Active Substance: CARBIDOPA\LEVODOPA
     Indication: Parkinson^s disease
     Dosage: MORNING DOSE (ML): 15.00 CONTINUOUS DOSE (ML): 6.50 EXTRA DOSE (ML): 3.00
     Route: 050
     Dates: start: 20250707
  2. CARBIDOPA\LEVODOPA [Suspect]
     Active Substance: CARBIDOPA\LEVODOPA
  3. Dopadex sr [Concomitant]
     Indication: Parkinson^s disease
     Dosage: 50 MILLIGRAM
     Route: 048
     Dates: start: 2024

REACTIONS (5)
  - Myocardial infarction [Fatal]
  - Abdominal pain [Recovered/Resolved]
  - Large intestine perforation [Recovering/Resolving]
  - Constipation [Recovered/Resolved]
  - General physical health deterioration [Not Recovered/Not Resolved]

NARRATIVE: CASE EVENT DATE: 20250101
